FAERS Safety Report 14657036 (Version 1)
Quarter: 2018Q1

REPORT INFORMATION
  Report Type: Spontaneous
  Country: US (occurrence: US)
  Receive Date: 20180319
  Receipt Date: 20180319
  Transmission Date: 20180509
  Serious: No
  Sender: FDA-Public Use
  Company Number: US-TARO-2017TAR00650

PATIENT
  Sex: Female
  Weight: 64.4 kg

DRUGS (5)
  1. NYSTATIN. [Suspect]
     Active Substance: NYSTATIN
     Indication: CANDIDA INFECTION
     Dosage: UNK
     Dates: start: 20170719
  2. UNSPECIFIED CHEMO [Concomitant]
     Active Substance: UNSPECIFIED INGREDIENT
  3. FAMOTIDINE. [Concomitant]
     Active Substance: FAMOTIDINE
  4. CLARITIN [Concomitant]
     Active Substance: LORATADINE
  5. TYLENOL [Concomitant]
     Active Substance: ACETAMINOPHEN
     Dosage: UNK, AS NEEDED

REACTIONS (1)
  - Tongue ulceration [Recovering/Resolving]

NARRATIVE: CASE EVENT DATE: 20170720
